FAERS Safety Report 5278786-6 (Version None)
Quarter: 2007Q1

REPORT INFORMATION
  Report Type: 
  Country: None (occurrence: None)
  Receive Date: 20061208
  Receipt Date: 20060605
  Transmission Date: 20070707
  Serious: Yes (Other)
  Sender: FDA-Public Use
  Company Number: USA-2005-0021468

PATIENT
  Sex: Male

DRUGS (12)
  1. OXYCONTIN [Suspect]
     Indication: PAIN IN EXTREMITY
     Dosage: SEE TEXT
  2. WELLBUTRIN [Concomitant]
  3. DYAZIDE [Concomitant]
  4. NADOLOL [Concomitant]
  5. CELEBREX [Concomitant]
  6. LORTAB [Concomitant]
  7. AMBIEN [Concomitant]
  8. DYAZIDE [Concomitant]
  9. ALLEGRA D 24 HOUR [Concomitant]
  10. CLONIDINE [Concomitant]
  11. TRAZODONE HCL [Concomitant]
  12. LIDODERM [Concomitant]

REACTIONS (20)
  - ALLODYNIA [None]
  - ANXIETY [None]
  - CONSTIPATION [None]
  - DELUSIONAL DISORDER, UNSPECIFIED TYPE [None]
  - DEPRESSION [None]
  - DEVICE FAILURE [None]
  - DRUG DEPENDENCE [None]
  - DRUG INEFFECTIVE [None]
  - DRUG TOLERANCE [None]
  - DRUG WITHDRAWAL SYNDROME [None]
  - FATIGUE [None]
  - HYPOAESTHESIA [None]
  - INADEQUATE ANALGESIA [None]
  - INSOMNIA [None]
  - INTENTIONAL DRUG MISUSE [None]
  - OBSESSIVE-COMPULSIVE DISORDER [None]
  - OEDEMA PERIPHERAL [None]
  - PAIN IN EXTREMITY [None]
  - PARANOIA [None]
  - SLEEP DISORDER [None]
